FAERS Safety Report 4887817-4 (Version None)
Quarter: 2006Q1

REPORT INFORMATION
  Report Type: 
  Country: None (occurrence: None)
  Receive Date: 20060123
  Receipt Date: 20041202
  Transmission Date: 20060701
  Serious: Yes (Hospitalization)
  Sender: FDA-Public Use
  Company Number: US-MERCK-0412USA00473

PATIENT
  Sex: Female

DRUGS (4)
  1. VIOXX [Suspect]
     Indication: ARTHRALGIA
     Route: 065
  2. LEVOXYL [Concomitant]
     Route: 065
  3. TRAZODONE HYDROCHLORIDE [Concomitant]
     Route: 065
  4. SONATA [Concomitant]
     Route: 065

REACTIONS (5)
  - BACK PAIN [None]
  - CEREBROVASCULAR ACCIDENT [None]
  - CHEST X-RAY ABNORMAL [None]
  - FEMUR FRACTURE [None]
  - OEDEMA PERIPHERAL [None]
